FAERS Safety Report 7643695-1 (Version None)
Quarter: 2011Q3

REPORT INFORMATION
  Report Type: 
  Country: None (occurrence: None)
  Receive Date: 20110729
  Receipt Date: 20110721
  Transmission Date: 20111222
  Serious: Yes (Other)
  Sender: FDA-Public Use
  Company Number: PHHY2010AU86221

PATIENT
  Sex: Female

DRUGS (1)
  1. ZOLEDRONOC ACID [Suspect]
     Dosage: 5 MG, UNK
     Route: 042
     Dates: start: 20100612

REACTIONS (6)
  - VASODILATATION [None]
  - OEDEMA PERIPHERAL [None]
  - C-REACTIVE PROTEIN INCREASED [None]
  - VENOUS THROMBOSIS [None]
  - LIMB DISCOMFORT [None]
  - PAIN IN EXTREMITY [None]
